FAERS Safety Report 17354689 (Version 1)
Quarter: 2020Q1

REPORT INFORMATION
  Report Type: Report from Study
  Country: GB (occurrence: GB)
  Receive Date: 20200131
  Receipt Date: 20200131
  Transmission Date: 20200409
  Serious: Yes (Hospitalization)
  Sender: FDA-Public Use
  Company Number: GB-GLAXOSMITHKLINE-GB2020EME016539

PATIENT

DRUGS (1)
  1. MEPOLIZUMAB [Suspect]
     Active Substance: MEPOLIZUMAB
     Indication: ASTHMA
     Dosage: UNK

REACTIONS (8)
  - Bilevel positive airway pressure [Unknown]
  - Asthma [Unknown]
  - Alopecia [Unknown]
  - Oxygen saturation [Unknown]
  - Fatigue [Unknown]
  - Dyspnoea [Unknown]
  - Acidosis [Unknown]
  - Weight fluctuation [Unknown]
